FAERS Safety Report 5658425-2 (Version None)
Quarter: 2008Q1

REPORT INFORMATION
  Report Type: 
  Country: None (occurrence: None)
  Receive Date: 20080310
  Receipt Date: 20070502
  Transmission Date: 20080703
  Serious: No
  Sender: FDA-Public Use
  Company Number: US-BAYER-200710487BCC

PATIENT
  Age: 68 Year
  Sex: Female
  Weight: 68 kg

DRUGS (4)
  1. ALEVE [Suspect]
     Indication: POST-TRAUMATIC PAIN
     Route: 048
     Dates: start: 20070209, end: 20070210
  2. BLOOD PRESSURE MEDICATION [Concomitant]
  3. CENTRUM [Concomitant]
  4. SYNTHROID [Concomitant]

REACTIONS (3)
  - PAIN [None]
  - PALPITATIONS [None]
  - SLEEP DISORDER [None]
